FAERS Safety Report 13385345 (Version 4)
Quarter: 2018Q1

REPORT INFORMATION
  Report Type: Report from Study
  Country: FR (occurrence: FR)
  Receive Date: 20170330
  Receipt Date: 20180319
  Transmission Date: 20180508
  Serious: Yes (Death, Life-Threatening, Hospitalization, Other)
  Sender: FDA-Public Use
  Company Number: FR-TEVA-755234ACC

PATIENT
  Age: 40 Year
  Sex: Male

DRUGS (24)
  1. BENDAMUSTINE HYDROCHLORIDE. [Suspect]
     Active Substance: BENDAMUSTINE HYDROCHLORIDE
     Indication: MYCOSIS FUNGOIDES
     Dosage: 356 MILLIGRAM DAILY; 178 MG, TWICE DAILY (FIRST CYCLE)
     Route: 042
     Dates: start: 20160927, end: 20161018
  2. CETIRIZINE [Concomitant]
     Active Substance: CETIRIZINE HYDROCHLORIDE
     Dosage: UNK, UNKNOWN FREQ.
     Route: 065
  3. RAMIPRIL. [Concomitant]
     Active Substance: RAMIPRIL
     Indication: PRODUCT USED FOR UNKNOWN INDICATION
     Route: 065
  4. DERMOVAL                           /00008501/ [Concomitant]
     Active Substance: CLOBETASOL PROPIONATE
     Indication: PRODUCT USED FOR UNKNOWN INDICATION
     Route: 065
  5. PARACETAMOL [Concomitant]
     Active Substance: ACETAMINOPHEN
     Dosage: UNK UNK, UNKNOWN FREQ.
     Route: 065
  6. CETIRIZINE [Concomitant]
     Active Substance: CETIRIZINE HYDROCHLORIDE
     Dosage: UNK UNK, UNKNOWN FREQ.
     Route: 065
     Dates: start: 20161018
  7. ZOPHREN                            /00955301/ [Concomitant]
     Active Substance: ONDANSETRON
     Indication: PREMEDICATION
     Route: 065
     Dates: start: 20160927, end: 20160928
  8. BENDAMUSTINE HYDROCHLORIDE. [Suspect]
     Active Substance: BENDAMUSTINE HYDROCHLORIDE
     Dosage: 712 MILLIGRAM DAILY;
     Route: 042
     Dates: start: 20161018, end: 20161018
  9. ADCETRIS [Suspect]
     Active Substance: BRENTUXIMAB VEDOTIN
     Route: 042
  10. ADCETRIS [Suspect]
     Active Substance: BRENTUXIMAB VEDOTIN
     Route: 042
     Dates: start: 20170303
  11. ZOPHREN                            /00955301/ [Concomitant]
     Active Substance: ONDANSETRON
     Route: 065
     Dates: start: 20161018
  12. PARACETAMOL [Concomitant]
     Active Substance: ACETAMINOPHEN
     Indication: PREMEDICATION
     Route: 065
     Dates: start: 20160927
  13. ADCETRIS [Suspect]
     Active Substance: BRENTUXIMAB VEDOTIN
     Indication: MYCOSIS FUNGOIDES
     Dosage: (C1D1)
     Route: 042
     Dates: start: 20160927
  14. ADCETRIS [Suspect]
     Active Substance: BRENTUXIMAB VEDOTIN
     Route: 042
  15. CETIRIZINE [Concomitant]
     Active Substance: CETIRIZINE HYDROCHLORIDE
     Indication: PREMEDICATION
     Route: 065
     Dates: start: 20160927
  16. CETIRIZINE [Concomitant]
     Active Substance: CETIRIZINE HYDROCHLORIDE
     Dosage: UNK UNK, UNKNOWN FREQ.
     Route: 065
     Dates: start: 20161123
  17. ZOPHREN                            /00955301/ [Concomitant]
     Active Substance: ONDANSETRON
     Route: 065
     Dates: start: 20161123
  18. RAMIPRIL. [Concomitant]
     Active Substance: RAMIPRIL
     Route: 065
  19. BENDAMUSTINE HYDROCHLORIDE. [Suspect]
     Active Substance: BENDAMUSTINE HYDROCHLORIDE
     Route: 042
     Dates: start: 20161123
  20. PARACETAMOL [Concomitant]
     Active Substance: ACETAMINOPHEN
     Dosage: UNK UNK, UNKNOWN FREQ.
     Route: 065
     Dates: start: 20161018
  21. ZOPHREN                            /00955301/ [Concomitant]
     Active Substance: ONDANSETRON
     Route: 065
  22. ADCETRIS [Suspect]
     Active Substance: BRENTUXIMAB VEDOTIN
     Route: 042
     Dates: start: 20161018, end: 20170324
  23. PARACETAMOL [Concomitant]
     Active Substance: ACETAMINOPHEN
     Dosage: UNK UNK, UNKNOWN FREQ.
     Route: 065
     Dates: start: 20161123
  24. DEXERYL                            /00557601/ [Concomitant]
     Active Substance: GLYCERIN\PARAFFIN
     Indication: PRODUCT USED FOR UNKNOWN INDICATION
     Route: 065

REACTIONS (19)
  - Anaphylactic shock [Recovered/Resolved]
  - Nausea [Recovered/Resolved]
  - Neutropenia [Recovered/Resolved]
  - Off label use [Unknown]
  - Hyperlactacidaemia [Fatal]
  - Rash [Fatal]
  - Staphylococcal bacteraemia [Recovered/Resolved]
  - Hypotension [Recovered/Resolved]
  - Mycosis fungoides [Fatal]
  - Hyperthermia [Recovered/Resolved]
  - Acute kidney injury [Recovered/Resolved]
  - Thrombocytopenia [Recovered/Resolved]
  - Neutropenia [Recovered/Resolved]
  - Device related sepsis [Fatal]
  - Dyspnoea [Fatal]
  - Abdominal pain [Recovered/Resolved]
  - Anaphylactic reaction [Recovered/Resolved]
  - Diarrhoea [Recovered/Resolved]
  - Leukopenia [Recovered/Resolved]

NARRATIVE: CASE EVENT DATE: 201610
